FAERS Safety Report 6701434-2 (Version None)
Quarter: 2010Q2

REPORT INFORMATION
  Report Type: 
  Country: None (occurrence: None)
  Receive Date: 20100429
  Receipt Date: 20100420
  Transmission Date: 20101027
  Serious: Yes (Hospitalization, Other)
  Sender: FDA-Public Use
  Company Number: US-BAYER-201011735NA

PATIENT
  Age: 46 Year
  Sex: Female
  Weight: 68 kg

DRUGS (15)
  1. YAZ [Suspect]
     Indication: ORAL CONTRACEPTION
     Route: 048
     Dates: start: 20060101, end: 20090101
  2. YASMIN [Suspect]
     Indication: ORAL CONTRACEPTION
     Route: 048
     Dates: start: 20030101, end: 20090101
  3. OCELLA [Suspect]
     Indication: ORAL CONTRACEPTION
     Route: 048
     Dates: start: 20080101, end: 20090101
  4. MELOXICAM [Concomitant]
  5. NAPROXEN [Concomitant]
  6. AMOXICILLIN [Concomitant]
  7. CEFADROXIL [Concomitant]
  8. ZMAX [Concomitant]
  9. DOXYCYCLINE [Concomitant]
  10. CLINDAMYCIN [Concomitant]
  11. MIDRIN-A [Concomitant]
  12. MUPIROCEN [Concomitant]
  13. NEOMYCIN [Concomitant]
  14. ADVIL [Concomitant]
  15. MOTRIN [Concomitant]

REACTIONS (6)
  - ABDOMINAL PAIN [None]
  - ABDOMINAL PAIN UPPER [None]
  - ADENOMA BENIGN [None]
  - CHOLELITHIASIS [None]
  - NAUSEA [None]
  - VOMITING [None]
